FAERS Safety Report 13243179 (Version 1)
Quarter: 2017Q1

REPORT INFORMATION
  Report Type: Spontaneous
  Country: DE (occurrence: DE)
  Receive Date: 20170216
  Receipt Date: 20170216
  Transmission Date: 20170428
  Serious: Yes (Hospitalization)
  Sender: FDA-Public Use
  Company Number: DE-ABBVIE-17P-062-1875407-00

PATIENT
  Sex: Female

DRUGS (1)
  1. HUMIRA [Suspect]
     Active Substance: ADALIMUMAB
     Indication: HIDRADENITIS
     Route: 058
     Dates: start: 201610, end: 201612

REACTIONS (5)
  - Cystitis noninfective [Unknown]
  - Pathogen resistance [Unknown]
  - Dizziness [Unknown]
  - Hypertension [Unknown]
  - Nephritis [Unknown]
